FAERS Safety Report 7440503-9 (Version None)
Quarter: 2011Q2

REPORT INFORMATION
  Report Type: 
  Country: None (occurrence: None)
  Receive Date: 20110427
  Receipt Date: 20110422
  Transmission Date: 20111010
  Serious: Yes (Hospitalization)
  Sender: FDA-Public Use
  Company Number: JP-EISAI INC-E2090-01446-SPO-JP

PATIENT
  Sex: Male

DRUGS (14)
  1. REBAMIPIDE [Concomitant]
     Indication: GASTRITIS PROPHYLAXIS
     Route: 048
     Dates: start: 20090525
  2. LORFENAMIN [Suspect]
     Route: 048
     Dates: start: 20061218, end: 20101208
  3. EURODIN [Suspect]
     Indication: INSOMNIA
     Route: 048
     Dates: start: 20100419, end: 20101208
  4. ASPIRIN [Concomitant]
     Indication: CEREBRAL INFARCTION
     Route: 048
     Dates: end: 20101206
  5. LASIX [Concomitant]
     Indication: HYPERTENSION
     Route: 048
  6. SIGMART [Concomitant]
     Indication: HYPERTENSION
     Route: 048
  7. CILOSTAZOL [Concomitant]
     Indication: CEREBRAL INFARCTION
     Route: 048
  8. ARICEPT [Concomitant]
     Indication: DEMENTIA WITH LEWY BODIES
     Route: 048
     Dates: start: 20070129
  9. SYMMETREL [Concomitant]
     Indication: DEMENTIA WITH LEWY BODIES
     Route: 048
     Dates: start: 20101206
  10. EXCEGRAN [Suspect]
     Dosage: 0.125 GRAM
     Route: 048
     Dates: start: 20101122, end: 20101208
  11. EXCEGRAN [Suspect]
     Indication: EPILEPSY
     Dosage: 0.25 GRAM
     Route: 048
     Dates: start: 20090928, end: 20101121
  12. DIOVAN [Concomitant]
     Indication: HYPERTENSION
     Route: 048
  13. REQUIP [Concomitant]
     Indication: DEMENTIA WITH LEWY BODIES
     Route: 048
     Dates: start: 20070723
  14. MENEST [Concomitant]
     Indication: DEMENTIA WITH LEWY BODIES
     Route: 048
     Dates: start: 20090119

REACTIONS (1)
  - TOXIC SKIN ERUPTION [None]
